FAERS Safety Report 4513114-2 (Version None)
Quarter: 2004Q4

REPORT INFORMATION
  Report Type: 
  Country: None (occurrence: None)
  Receive Date: 20040928
  Receipt Date: 20040621
  Transmission Date: 20050328
  Serious: No
  Sender: FDA-Public Use
  Company Number: 04P-163-0264509-00

PATIENT
  Sex: Female

DRUGS (4)
  1. HUMIRA [Suspect]
     Indication: RHEUMATOID ARTHRITIS
     Dosage: 40 MG, 1 IN 2 WK, SUBCUTANEOUS
     Route: 058
     Dates: start: 20040607
  2. AMLODIPINE BESYLATE [Concomitant]
  3. DIOVAN [Concomitant]
  4. ALENDRONATE SODIUM [Concomitant]

REACTIONS (5)
  - DIFFICULTY IN WALKING [None]
  - INJECTION SITE ERYTHEMA [None]
  - INJECTION SITE STINGING [None]
  - INJECTION SITE WARMTH [None]
  - RASH [None]
